FAERS Safety Report 14927410 (Version 4)
Quarter: 2021Q1

REPORT INFORMATION
  Report Type: Spontaneous
  Country: US (occurrence: US)
  Receive Date: 20180523
  Receipt Date: 20210114
  Transmission Date: 20210419
  Serious: Yes (Other)
  Sender: FDA-Public Use
  Company Number: US-PFIZER INC-2018208929

PATIENT
  Age: 60 Year
  Sex: Male
  Weight: 136 kg

DRUGS (1)
  1. LYRICA [Suspect]
     Active Substance: PREGABALIN
     Indication: DIABETIC NEUROPATHY
     Dosage: 200 MG, 3X/DAY
     Route: 048

REACTIONS (6)
  - Overdose [Unknown]
  - Vomiting [Unknown]
  - Mobility decreased [Unknown]
  - Tremor [Unknown]
  - Withdrawal syndrome [Unknown]
  - Pain [Unknown]
